FAERS Safety Report 6014817-3 (Version None)
Quarter: 2008Q4

REPORT INFORMATION
  Report Type: 
  Country: None (occurrence: None)
  Receive Date: 20081219
  Receipt Date: 20081208
  Transmission Date: 20090506
  Serious: Yes (Hospitalization, Congenital Anomaly)
  Sender: FDA-Public Use
  Company Number: US-PFIZER INC-2007095370

PATIENT
  Sex: Male
  Weight: 4 kg

DRUGS (3)
  1. ZOLOFT [Suspect]
  2. AXID [Concomitant]
     Indication: GASTROOESOPHAGEAL REFLUX DISEASE
  3. ACYCLOVIR [Concomitant]
     Indication: HERPES SIMPLEX

REACTIONS (2)
  - DRUG EXPOSURE DURING PREGNANCY [None]
  - TRANSPOSITION OF THE GREAT VESSELS [None]
